FAERS Safety Report 8159185-6 (Version None)
Quarter: 2012Q1

REPORT INFORMATION
  Report Type: 
  Country: None (occurrence: None)
  Receive Date: 20120216
  Receipt Date: 20120203
  Transmission Date: 20120608
  Serious: Yes (Other)
  Sender: FDA-Public Use
  Company Number: US-JNJFOC-20120203268

PATIENT

DRUGS (1)
  1. DACOGEN [Suspect]
     Indication: PRODUCT USED FOR UNKNOWN INDICATION
     Dosage: 2ND INFUSION INTRAVENOUS ; INTRAVENOUS
     Route: 042

REACTIONS (6)
  - BALANCE DISORDER [None]
  - BRADYKINESIA [None]
  - MUSCLE RIGIDITY [None]
  - MUSCULOSKELETAL STIFFNESS [None]
  - TREMOR [None]
  - PARKINSON'S DISEASE [None]
